FAERS Safety Report 15280148 (Version 1)
Quarter: 2018Q3

REPORT INFORMATION
  Report Type: Spontaneous
  Country: ES (occurrence: ES)
  Receive Date: 20180815
  Receipt Date: 20180815
  Transmission Date: 20181010
  Serious: Yes (Other)
  Sender: FDA-Public Use
  Company Number: ES-TEVA-2018-ES-941060

PATIENT
  Age: 89 Year
  Sex: Male

DRUGS (4)
  1. CEFTRIAXONA (501A) [Concomitant]
     Active Substance: CEFTRIAXONE
     Dosage: 2 GRAM DAILY;
     Route: 042
     Dates: start: 20180615, end: 20180620
  2. ATORVASTATINA (7400A) [Suspect]
     Active Substance: ATORVASTATIN
     Indication: HYPERCHOLESTEROLAEMIA
     Dosage: 40 MILLIGRAM DAILY;
     Route: 048
     Dates: start: 20180615, end: 20180618
  3. METOCLOPRAMIDA (1958A) [Concomitant]
     Dosage: 10 MILLIGRAM DAILY;
     Route: 042
     Dates: start: 20180515, end: 20180620
  4. ENOXAPARINA SODICA (2482SO) [Concomitant]
     Active Substance: ENOXAPARIN SODIUM
     Dosage: 100 MILLIGRAM DAILY;
     Route: 058
     Dates: start: 20180615, end: 20180622

REACTIONS (2)
  - Hypertransaminasaemia [Recovered/Resolved]
  - Hyperbilirubinaemia [Recovered/Resolved]

NARRATIVE: CASE EVENT DATE: 20180617
